FAERS Safety Report 7898618-7 (Version None)
Quarter: 2011Q4

REPORT INFORMATION
  Report Type: 
  Country: None (occurrence: None)
  Receive Date: 20111107
  Receipt Date: 20111107
  Transmission Date: 20120403
  Serious: Yes (Other)
  Sender: FDA-Public Use
  Company Number: None

PATIENT
  Age: 59 Year
  Sex: Female
  Weight: 72.574 kg

DRUGS (1)
  1. REMICADE [Suspect]
     Indication: CROHN'S DISEASE
     Dosage: DON'T KNOW
     Route: 041

REACTIONS (3)
  - LABORATORY TEST ABNORMAL [None]
  - LABORATORY TEST INTERFERENCE [None]
  - ANTINUCLEAR ANTIBODY POSITIVE [None]
